FAERS Safety Report 8119588-2 (Version None)
Quarter: 2012Q1

REPORT INFORMATION
  Report Type: 
  Country: None (occurrence: None)
  Receive Date: 20120207
  Receipt Date: 20120131
  Transmission Date: 20120608
  Serious: Yes (Other)
  Sender: FDA-Public Use
  Company Number: PHHY2011CA107044

PATIENT
  Sex: Female

DRUGS (2)
  1. AFINITOR [Suspect]
     Indication: PANCREATIC NEUROENDOCRINE TUMOUR
     Dosage: 10 MG, QD
     Dates: start: 20101001, end: 20101104
  2. SANDOSTATIN LAR [Concomitant]
     Dosage: 30 MG, MONTHLY
     Route: 030

REACTIONS (1)
  - PARKINSON'S DISEASE [None]
